FAERS Safety Report 21726460 (Version 2)
Quarter: 2022Q4

REPORT INFORMATION
  Report Type: Report from Study
  Country: US (occurrence: None)
  Receive Date: 20221214
  Receipt Date: 20221219
  Transmission Date: 20230113
  Serious: Yes (Hospitalization)
  Sender: FDA-Public Use
  Company Number: US-Eisai Medical Research-EC-2022-129900

PATIENT
  Age: 60 Year
  Sex: Male
  Weight: 64.2 kg

DRUGS (17)
  1. FAVEZELIMAB [Suspect]
     Active Substance: FAVEZELIMAB
     Indication: Colorectal cancer
     Dosage: MK 4280 800 MG (+) PEMBROLIZUMAB 200 MG
     Route: 042
     Dates: start: 20190828, end: 20191125
  2. PEMBROLIZUMAB [Suspect]
     Active Substance: PEMBROLIZUMAB
     Dosage: MK 4280 800 MG (+) PEMBROLIZUMAB 200 MG
     Route: 042
     Dates: start: 20191216, end: 20200421
  3. TAMSULOSIN HYDROCHLORIDE [Concomitant]
     Active Substance: TAMSULOSIN HYDROCHLORIDE
     Dates: start: 20190220
  4. SILVER SULFADIAZENE [Concomitant]
     Active Substance: SILVER SULFADIAZINE
     Dates: start: 20190209
  5. RANITIDINE [Concomitant]
     Active Substance: RANITIDINE
     Dates: start: 20190415
  6. POTASSIUM CHLORIDE [Concomitant]
     Active Substance: POTASSIUM CHLORIDE
     Dates: start: 20190414
  7. ONDANSETRON [Concomitant]
     Active Substance: ONDANSETRON
     Dates: start: 20190410
  8. REMERON [Concomitant]
     Active Substance: MIRTAZAPINE
     Dates: start: 20190624
  9. METHADONE HYDROCHLORIDE [Concomitant]
     Active Substance: METHADONE HYDROCHLORIDE
     Dates: start: 20190509
  10. LACTULOSE [Concomitant]
     Active Substance: LACTULOSE
     Dates: start: 20190510
  11. DILAUDID [Concomitant]
     Active Substance: HYDROMORPHONE HYDROCHLORIDE
     Dates: start: 20190814
  12. HYDROCORTISONE ACETATE;PRAMOCAINE HYDROCHLORIDE [Concomitant]
     Dates: start: 20190514
  13. GABAPENTIN [Concomitant]
     Active Substance: GABAPENTIN
     Dates: start: 20190509
  14. ERGOCALCIFEROL [Concomitant]
     Active Substance: ERGOCALCIFEROL
     Dates: start: 20190418
  15. DICLOFENAC SODIUM [Concomitant]
     Active Substance: DICLOFENAC SODIUM
     Dates: start: 20190624
  16. CLONAZEPAM [Concomitant]
     Active Substance: CLONAZEPAM
     Dates: start: 20190213
  17. PREDNISONE [Concomitant]
     Active Substance: PREDNISONE
     Dates: start: 20191019, end: 20191204

REACTIONS (1)
  - Intestinal obstruction [Recovered/Resolved]

NARRATIVE: CASE EVENT DATE: 20191126
